FAERS Safety Report 19424378 (Version 2)
Quarter: 2025Q1

REPORT INFORMATION
  Report Type: Spontaneous
  Country: US (occurrence: US)
  Receive Date: 20210616
  Receipt Date: 20250115
  Transmission Date: 20250408
  Serious: No
  Sender: SK LIFE SCIENCE
  Company Number: US-SK LIFE SCIENCE, INC.-SKPVG-2021-000508

PATIENT

DRUGS (12)
  1. XCOPRI [Suspect]
     Active Substance: CENOBAMATE
     Indication: Seizure
     Route: 048
     Dates: start: 2021
  2. XCOPRI [Suspect]
     Active Substance: CENOBAMATE
     Indication: Epilepsy
     Dosage: 150 MILLIGRAM, QD
     Route: 048
  3. XCOPRI [Suspect]
     Active Substance: CENOBAMATE
     Dosage: 250 MILLIGRAM, ONCE DAILY AT NIGHT
     Route: 048
  4. XCOPRI [Suspect]
     Active Substance: CENOBAMATE
     Dosage: 250 MILLIGRAM, QD
     Route: 048
  5. XCOPRI [Suspect]
     Active Substance: CENOBAMATE
     Dosage: 250 MILLIGRAM, QD ( 150 MG + 100 MG 1 TABLET OF EACH SIZE, ONCE DAILY AT NIGHT)
     Route: 048
     Dates: start: 2023
  6. CLONAZEPAM [Suspect]
     Active Substance: CLONAZEPAM
     Indication: Seizure
     Route: 065
  7. CLONAZEPAM [Suspect]
     Active Substance: CLONAZEPAM
     Indication: Anxiety
  8. VIMPAT [Concomitant]
     Active Substance: LACOSAMIDE
     Indication: Product used for unknown indication
     Route: 065
  9. TOPAMAX [Concomitant]
     Active Substance: TOPIRAMATE
     Indication: Product used for unknown indication
     Route: 065
  10. LAMICTAL [Concomitant]
     Active Substance: LAMOTRIGINE
     Indication: Product used for unknown indication
     Dosage: 100 MILLIGRAM, QD
     Route: 065
  11. LAMICTAL [Concomitant]
     Active Substance: LAMOTRIGINE
     Route: 065
  12. LORAZEPAM [Concomitant]
     Active Substance: LORAZEPAM
     Indication: Anxiety
     Route: 065

REACTIONS (10)
  - Seizure [Not Recovered/Not Resolved]
  - Product dose omission issue [Recovered/Resolved]
  - Anxiety [Not Recovered/Not Resolved]
  - Seizure [Recovered/Resolved]
  - Hyperhidrosis [Unknown]
  - Malaise [Unknown]
  - Headache [Not Recovered/Not Resolved]
  - Somnolence [Not Recovered/Not Resolved]
  - Weight decreased [Not Recovered/Not Resolved]
  - Dizziness [Not Recovered/Not Resolved]

NARRATIVE: CASE EVENT DATE: 20210401
